FAERS Safety Report 16900883 (Version 1)
Quarter: 2019Q4

REPORT INFORMATION
  Report Type: Spontaneous
  Country: US (occurrence: US)
  Receive Date: 20191009
  Receipt Date: 20191009
  Transmission Date: 20200122
  Serious: No
  Sender: FDA-Public Use
  Company Number: US-ALKERMES INC.-ALK-2019-001195

PATIENT
  Age: 33 Year
  Sex: Male

DRUGS (1)
  1. ARISTADA [Suspect]
     Active Substance: ARIPIPRAZOLE LAUROXIL
     Indication: SCHIZOPHRENIA
     Dosage: UNK
     Route: 030

REACTIONS (13)
  - Arthralgia [Not Recovered/Not Resolved]
  - Product dose omission [Not Recovered/Not Resolved]
  - Intentional self-injury [Recovered/Resolved]
  - Fatigue [Recovered/Resolved]
  - Asthenia [Not Recovered/Not Resolved]
  - Dyspepsia [Recovered/Resolved]
  - Myalgia [Not Recovered/Not Resolved]
  - Abnormal dreams [Recovered/Resolved]
  - Therapeutic response shortened [Not Recovered/Not Resolved]
  - Influenza like illness [Not Recovered/Not Resolved]
  - Muscle spasms [Recovered/Resolved]
  - Depression [Not Recovered/Not Resolved]
  - Pain [Not Recovered/Not Resolved]

NARRATIVE: CASE EVENT DATE: 20190403
